FAERS Safety Report 6667271-2 (Version None)
Quarter: 2010Q2

REPORT INFORMATION
  Report Type: 
  Country: None (occurrence: None)
  Receive Date: 20100405
  Receipt Date: 20100323
  Transmission Date: 20101027
  Serious: No
  Sender: FDA-Public Use
  Company Number: US-JNJFOC-20100306813

PATIENT
  Sex: Female
  Weight: 65.77 kg

DRUGS (8)
  1. FENTANYL-100 [Suspect]
     Indication: BACK PAIN
     Route: 062
     Dates: start: 20040101
  2. FENTANYL CITRATE [Suspect]
     Indication: BACK PAIN
     Route: 062
     Dates: start: 20100201
  3. NEURONTIN [Concomitant]
     Indication: RESTLESS LEGS SYNDROME
     Route: 048
     Dates: start: 20000101
  4. COLACE [Concomitant]
     Indication: CONSTIPATION
     Route: 048
     Dates: start: 20000101
  5. RELPAX [Concomitant]
     Indication: MIGRAINE
     Route: 048
     Dates: start: 20000101
  6. ACYCLOVIR [Concomitant]
     Indication: MENINGITIS VIRAL
     Route: 048
     Dates: start: 19900101
  7. PRILOSEC [Concomitant]
     Indication: GASTROOESOPHAGEAL REFLUX DISEASE
     Route: 048
     Dates: start: 20030101
  8. SEROQUEL [Concomitant]
     Indication: BIPOLAR DISORDER
     Route: 048
     Dates: start: 20030101

REACTIONS (5)
  - APPLICATION SITE URTICARIA [None]
  - DRUG ADMINISTERED AT INAPPROPRIATE SITE [None]
  - DRUG INEFFECTIVE [None]
  - FALL [None]
  - JOINT SPRAIN [None]
